FAERS Safety Report 8473790-9 (Version None)
Quarter: 2012Q2

REPORT INFORMATION
  Report Type: 
  Country: None (occurrence: None)
  Receive Date: 20120628
  Receipt Date: 20111117
  Transmission Date: 20120825
  Serious: Yes (Life-Threatening, Other)
  Sender: FDA-Public Use
  Company Number: US-MYLANLABS-2011S1023522

PATIENT
  Age: 51 Year
  Sex: Male

DRUGS (9)
  1. TRAZODONE HCL [Concomitant]
  2. PEPCID [Concomitant]
  3. METFORMIN HCL [Concomitant]
  4. REGLAN [Concomitant]
  5. ACETAMINOPHEN [Concomitant]
  6. HALDOL [Concomitant]
  7. MULTI-VITAMIN [Concomitant]
  8. CLOZAPINE [Suspect]
     Indication: SCHIZOPHRENIA, UNDIFFERENTIATED TYPE
     Route: 048
     Dates: end: 20111108
  9. DEPAKOTE ER [Concomitant]

REACTIONS (3)
  - AGRANULOCYTOSIS [None]
  - GRANULOCYTOPENIA [None]
  - LEUKOPENIA [None]
